FAERS Safety Report 5510189-9 (Version None)
Quarter: 2007Q4

REPORT INFORMATION
  Report Type: 
  Country: None (occurrence: None)
  Receive Date: 20071108
  Receipt Date: 20071030
  Transmission Date: 20080405
  Serious: Yes (Hospitalization)
  Sender: FDA-Public Use
  Company Number: US-ROCHE-528694

PATIENT
  Age: 33 Year
  Sex: Male
  Weight: 103.4 kg

DRUGS (7)
  1. VALGANCICLOVIR HCL [Suspect]
     Route: 048
     Dates: start: 20070417
  2. BLINDED VALGANCICLOVIR [Suspect]
     Dosage: GIVEN DAILY.
     Route: 048
     Dates: end: 20071021
  3. BLINDED VALGANCICLOVIR [Suspect]
     Dosage: GIVEN DAILY.
     Route: 048
     Dates: start: 20071023, end: 20071029
  4. PREDNISONE TAB [Concomitant]
     Dates: start: 20070913
  5. TACROLIMUS [Concomitant]
     Dates: start: 20070723
  6. CELLCEPT [Concomitant]
     Dates: start: 20071002
  7. NEUPOGEN [Concomitant]
     Dosage: GIVEN FIVE DOSES.
     Route: 058
     Dates: start: 20071012, end: 20071017

REACTIONS (2)
  - EPSTEIN-BARR VIRUS INFECTION [None]
  - NEUTROPENIA [None]
